FAERS Safety Report 5531531-9 (Version None)
Quarter: 2007Q4

REPORT INFORMATION
  Report Type: 
  Country: None (occurrence: None)
  Receive Date: 20071128
  Receipt Date: 20071128
  Transmission Date: 20080405
  Serious: Yes (Other)
  Sender: FDA-Public Use
  Company Number: None

PATIENT
  Age: 41 Year
  Sex: Female
  Weight: 80.7403 kg

DRUGS (1)
  1. NICORETTE [Suspect]
     Dosage: 12 PIECES OR MORE

REACTIONS (6)
  - CLUMSINESS [None]
  - DIZZINESS [None]
  - EPISCLERITIS [None]
  - HYPOAESTHESIA [None]
  - ONYCHOMYCOSIS [None]
  - WEIGHT LOSS POOR [None]
